FAERS Safety Report 20741078 (Version 4)
Quarter: 2022Q2

REPORT INFORMATION
  Report Type: Spontaneous
  Country: US (occurrence: US)
  Receive Date: 20220422
  Receipt Date: 20220512
  Transmission Date: 20220720
  Serious: No
  Sender: FDA-Public Use
  Company Number: ae008US22

PATIENT
  Sex: Female

DRUGS (2)
  1. ASCLERA [Suspect]
     Active Substance: POLIDOCANOL
     Indication: Varicose vein
     Dosage: 1 SYRINGE (1 CC)
     Route: 065
     Dates: start: 20220119, end: 20220119
  2. POLYSPORIN [Concomitant]
     Active Substance: BACITRACIN ZINC\POLYMYXIN B SULFATE
     Route: 061

REACTIONS (3)
  - Injection site discolouration [Unknown]
  - Injection site injury [Recovering/Resolving]
  - Drug ineffective [Unknown]
